FAERS Safety Report 7875294-0 (Version None)
Quarter: 2011Q4

REPORT INFORMATION
  Report Type: 
  Country: None (occurrence: None)
  Receive Date: 20111031
  Receipt Date: 20111024
  Transmission Date: 20120403
  Serious: Yes (Other)
  Sender: FDA-Public Use
  Company Number: TR-PFIZER INC-2011259602

PATIENT
  Age: 42 Year
  Sex: Male

DRUGS (10)
  1. PREDNISOLONE [Suspect]
     Indication: IMMUNOSUPPRESSION
     Dosage: 5 MG, EVERY 2 DAYS
  2. TACROLIMUS [Suspect]
     Indication: IMMUNOSUPPRESSION
     Dosage: 2 G, 1X/DAY
  3. ALLOPURINOL [Concomitant]
     Dosage: 300 MG, 1X/DAY
  4. SIROLIMUS [Suspect]
     Indication: IMMUNOSUPPRESSION
     Dosage: 2 MG/DAY
  5. CANDESARTAN [Concomitant]
     Dosage: 16 MG, 1X/DAY
  6. MYCOPHENOLATE MOFETIL [Suspect]
     Indication: IMMUNOSUPPRESSION
     Dosage: 1500 MG, 1X/DAY
  7. HYDROCHLOROTHIAZIDE [Concomitant]
  8. VERAPAMIL [Concomitant]
     Dosage: 240 MG, 1X/DAY
  9. RANITIDIN ^ISIS^ [Concomitant]
     Dosage: 300 MG, 1X/DAY
  10. ACARBOSE [Concomitant]
     Dosage: 150 MG, 1X/DAY

REACTIONS (1)
  - PYODERMA GANGRENOSUM [None]
